FAERS Safety Report 13749176 (Version 1)
Quarter: 2017Q3

REPORT INFORMATION
  Report Type: Spontaneous
  Country: SE (occurrence: SE)
  Receive Date: 20170713
  Receipt Date: 20170713
  Transmission Date: 20171127
  Serious: Yes (Hospitalization)
  Sender: FDA-Public Use
  Company Number: SE-TEVA-784908ISR

PATIENT
  Age: 68 Year
  Sex: Male

DRUGS (4)
  1. CALCIUM FOLINATE [Suspect]
     Active Substance: LEUCOVORIN CALCIUM
  2. BEVACIZUMAB. [Suspect]
     Active Substance: BEVACIZUMAB
  3. FLUOROURACIL. [Suspect]
     Active Substance: FLUOROURACIL
  4. IRINOTECAN [Suspect]
     Active Substance: IRINOTECAN

REACTIONS (3)
  - Pyrexia [Recovered/Resolved]
  - Fatigue [Recovered/Resolved]
  - Agranulocytosis [Recovered/Resolved]
